FAERS Safety Report 7133563-6 (Version None)
Quarter: 2010Q4

REPORT INFORMATION
  Report Type: 
  Country: None (occurrence: None)
  Receive Date: 20101202
  Receipt Date: 20101123
  Transmission Date: 20110411
  Serious: Yes (Other)
  Sender: FDA-Public Use
  Company Number: US-AMGEN-USASP2010006312

PATIENT

DRUGS (1)
  1. NEULASTA [Suspect]
     Indication: PRODUCT USED FOR UNKNOWN INDICATION
     Dosage: UNK

REACTIONS (2)
  - PALPITATIONS [None]
  - WHITE BLOOD CELL COUNT INCREASED [None]
